FAERS Safety Report 8456992-7 (Version None)
Quarter: 2012Q2

REPORT INFORMATION
  Report Type: 
  Country: None (occurrence: None)
  Receive Date: 20120621
  Receipt Date: 20120619
  Transmission Date: 20120825
  Serious: Yes (Other)
  Sender: FDA-Public Use
  Company Number: US-CELGENEUS-163-21880-11113989

PATIENT
  Sex: Male
  Weight: 83.5 kg

DRUGS (1)
  1. REVLIMID [Suspect]
     Indication: MULTIPLE MYELOMA
     Dosage: 15 MILLIGRAM
     Route: 048
     Dates: start: 20110321

REACTIONS (4)
  - VISION BLURRED [None]
  - CARDIAC DISORDER [None]
  - CARDIAC VALVE DISEASE [None]
  - PAIN IN EXTREMITY [None]
